FAERS Safety Report 5603189-1 (Version None)
Quarter: 2008Q1

REPORT INFORMATION
  Report Type: 
  Country: None (occurrence: None)
  Receive Date: 20080123
  Receipt Date: 20080107
  Transmission Date: 20080703
  Serious: Yes (Other)
  Sender: FDA-Public Use
  Company Number: B0502183A

PATIENT
  Age: 68 Year
  Sex: Male

DRUGS (1)
  1. LAMOTRIGINE [Suspect]
     Indication: CONVULSION

REACTIONS (3)
  - LYMPHOID TISSUE HYPERPLASIA [None]
  - SUBCUTANEOUS NODULE [None]
  - T-CELL LYMPHOMA [None]
